FAERS Safety Report 20161908 (Version 1)
Quarter: 2021Q4

REPORT INFORMATION
  Report Type: Spontaneous
  Country: NZ (occurrence: NZ)
  Receive Date: 20211208
  Receipt Date: 20211208
  Transmission Date: 20220303
  Serious: Yes (Hospitalization, Other)
  Sender: FDA-Public Use
  Company Number: NZ-BAXTER-2021BAX037694

PATIENT
  Age: 71 Year
  Sex: Female
  Weight: 64 kg

DRUGS (5)
  1. SODIUM CHLORIDE [Suspect]
     Active Substance: SODIUM CHLORIDE
     Indication: Medication dilution
     Dosage: DILUENT FOR PACLITAXEL
     Route: 042
     Dates: start: 20211118, end: 20211118
  2. DEXTROSE [Suspect]
     Active Substance: DEXTROSE
     Indication: Medication dilution
     Dosage: DILUENT FOR CARBOPLATIN
     Route: 042
     Dates: start: 20211118, end: 20211118
  3. SODIUM CHLORIDE [Suspect]
     Active Substance: SODIUM CHLORIDE
     Indication: Catheter management
     Route: 042
     Dates: start: 20211118, end: 20211118
  4. CARBOPLATIN [Suspect]
     Active Substance: CARBOPLATIN
     Indication: Non-small cell lung cancer
     Route: 042
     Dates: start: 20211118, end: 20211118
  5. PACLITAXEL [Suspect]
     Active Substance: PACLITAXEL
     Indication: Non-small cell lung cancer
     Route: 042
     Dates: start: 20211118, end: 20211118

REACTIONS (5)
  - Malaise [Unknown]
  - Constipation [Unknown]
  - Atrial fibrillation [Unknown]
  - Poor quality product administered [Unknown]
  - Product deposit [Unknown]

NARRATIVE: CASE EVENT DATE: 20211101
